FAERS Safety Report 22349798 (Version 1)
Quarter: 2023Q2

REPORT INFORMATION
  Report Type: Spontaneous
  Country: US (occurrence: None)
  Receive Date: 20230519
  Receipt Date: 20230519
  Transmission Date: 20230721
  Serious: No
  Sender: FDA-Public Use
  Company Number: None

PATIENT
  Age: 66 Year
  Sex: Female

DRUGS (1)
  1. HYDROCORTISONE [Suspect]
     Active Substance: HYDROCORTISONE
     Indication: Addison^s disease
     Dates: start: 20230201, end: 20230213

REACTIONS (6)
  - Product substitution issue [None]
  - Fatigue [None]
  - Nausea [None]
  - Asthenia [None]
  - Product measured potency issue [None]
  - Product formulation issue [None]

NARRATIVE: CASE EVENT DATE: 20230213
